FAERS Safety Report 6260321-7 (Version None)
Quarter: 2009Q3

REPORT INFORMATION
  Report Type: 
  Country: None (occurrence: None)
  Receive Date: 20090708
  Receipt Date: 20090626
  Transmission Date: 20100115
  Serious: Yes (Other)
  Sender: FDA-Public Use
  Company Number: DE-PFIZER INC-2009223202

PATIENT
  Age: 63 Year

DRUGS (8)
  1. CLINDAMYCIN HCL [Suspect]
     Indication: TOOTH ABSCESS
     Dosage: UNK
     Route: 048
     Dates: start: 20090501, end: 20090101
  2. DOXYCYCLINE HYCLATE [Suspect]
     Indication: TOOTH ABSCESS
     Dosage: UNK
     Dates: start: 20090529, end: 20090605
  3. AMPICILLIN AND SULBACTAM [Suspect]
     Indication: TOOTH ABSCESS
     Dosage: 1 DF, 2X/DAY
     Route: 048
     Dates: start: 20090501, end: 20090501
  4. AMOXICILLIN AND AMOXICILLIN TRIHYDRATE [Suspect]
     Indication: TOOTH ABSCESS
  5. MELLARIL [Concomitant]
     Indication: MENTAL DISORDER
     Dosage: 2X0.5 DF/DAY
  6. IMPROMEN [Concomitant]
     Indication: MENTAL DISORDER
     Dosage: 2X3 DROPS/DAY
  7. EINSALPHA [Concomitant]
     Indication: TUBULOINTERSTITIAL NEPHRITIS
     Dosage: UNK
  8. FERRO SANOL [Concomitant]
     Indication: NEPHROGENIC ANAEMIA
     Dosage: UNK

REACTIONS (4)
  - ANGIOEDEMA [None]
  - HYPERSENSITIVITY [None]
  - PRURITUS [None]
  - RASH MACULO-PAPULAR [None]
